FAERS Safety Report 23682742 (Version 1)
Quarter: 2024Q1

REPORT INFORMATION
  Report Type: Spontaneous
  Country: CN (occurrence: CN)
  Receive Date: 20240328
  Receipt Date: 20240328
  Transmission Date: 20240409
  Serious: Yes (Life-Threatening, Hospitalization)
  Sender: FDA-Public Use
  Company Number: CN-BAYER-2024A046162

PATIENT
  Age: 71 Year
  Sex: Male

DRUGS (2)
  1. ULTRAVIST [Suspect]
     Active Substance: IOPROMIDE
     Indication: Computerised tomogram
     Dosage: 90 ML, ONCE
     Route: 042
     Dates: start: 20240321, end: 20240321
  2. ULTRAVIST [Suspect]
     Active Substance: IOPROMIDE
     Indication: Ureterolithiasis

REACTIONS (8)
  - Anaphylactic shock [Recovering/Resolving]
  - Loss of consciousness [Recovered/Resolved]
  - Hyperhidrosis [None]
  - Urinary incontinence [None]
  - Blood pressure decreased [Recovering/Resolving]
  - Heart rate increased [None]
  - Dysstasia [None]
  - Fall [None]

NARRATIVE: CASE EVENT DATE: 20240321
